FAERS Safety Report 8121978-9 (Version None)
Quarter: 2012Q1

REPORT INFORMATION
  Report Type: 
  Country: None (occurrence: None)
  Receive Date: 20120208
  Receipt Date: 20120130
  Transmission Date: 20120608
  Serious: Yes (Hospitalization)
  Sender: FDA-Public Use
  Company Number: US-BAYER-2011-048427

PATIENT
  Age: 18 Year
  Sex: Female
  Weight: 64.399 kg

DRUGS (5)
  1. YAZ [Suspect]
     Dosage: UNK
     Dates: start: 20050101, end: 20080101
  2. YASMIN [Suspect]
     Dosage: UNK
     Dates: start: 20050101, end: 20080101
  3. ZOLOFT [Concomitant]
     Route: 048
  4. TOPAMAX [Concomitant]
     Route: 048
  5. NORGESTIMATE AND ETHINYL ESTRADIOL [Concomitant]

REACTIONS (8)
  - GALLBLADDER INJURY [None]
  - VOMITING [None]
  - FEAR [None]
  - PAIN [None]
  - WEIGHT DECREASED [None]
  - BILIARY DYSKINESIA [None]
  - GALLBLADDER DISORDER [None]
  - ABDOMINAL PAIN UPPER [None]
